FAERS Safety Report 7775446-4 (Version None)
Quarter: 2011Q3

REPORT INFORMATION
  Report Type: 
  Country: None (occurrence: None)
  Receive Date: 20110923
  Receipt Date: 20110920
  Transmission Date: 20111222
  Serious: Yes (Other)
  Sender: FDA-Public Use
  Company Number: PHHY2011AR17018

PATIENT
  Sex: Female

DRUGS (3)
  1. ZOLEDRONOC ACID [Suspect]
     Indication: BONE DISORDER
     Dosage: 1 AMPOULE ANNUALLY
     Route: 058
     Dates: start: 20100101
  2. ZOLEDRONOC ACID [Suspect]
     Dosage: UNK
     Route: 042
     Dates: start: 20110101
  3. RAQUIFEROL [Concomitant]
     Dosage: UNK UKN, UNK

REACTIONS (7)
  - ABNORMAL FAECES [None]
  - GENITAL INJURY [None]
  - DYSURIA [None]
  - URINE OUTPUT INCREASED [None]
  - OEDEMA PERIPHERAL [None]
  - ALOPECIA [None]
  - DRUG ADMINISTRATION ERROR [None]
